FAERS Safety Report 6740246-0 (Version None)
Quarter: 2010Q2

REPORT INFORMATION
  Report Type: 
  Country: None (occurrence: None)
  Receive Date: 20100525
  Receipt Date: 20100521
  Transmission Date: 20101027
  Serious: Yes (Hospitalization)
  Sender: FDA-Public Use
  Company Number: A0860333A

PATIENT
  Age: 47 Year
  Sex: Female

DRUGS (5)
  1. ALLI [Suspect]
     Indication: DRUG USE FOR UNKNOWN INDICATION
     Route: 048
     Dates: start: 20100210
  2. ATENOLOL [Concomitant]
  3. CHLORTHALIDONE [Concomitant]
  4. LEVOXYL [Concomitant]
  5. POTASSIUM [Concomitant]

REACTIONS (9)
  - ABDOMINAL PAIN [None]
  - APPENDICECTOMY [None]
  - APPENDICITIS [None]
  - DISCOMFORT [None]
  - MALAISE [None]
  - NAUSEA [None]
  - PAIN [None]
  - PYREXIA [None]
  - WHITE BLOOD CELL COUNT INCREASED [None]
